FAERS Safety Report 6078854-5 (Version None)
Quarter: 2009Q1

REPORT INFORMATION
  Report Type: 
  Country: None (occurrence: None)
  Receive Date: 20090216
  Receipt Date: 20090206
  Transmission Date: 20090719
  Serious: Yes (Other)
  Sender: FDA-Public Use
  Company Number: PHHY2008JP29154

PATIENT
  Sex: Male

DRUGS (1)
  1. ZOMETA [Suspect]
     Indication: METASTASES TO BONE
     Dosage: 5 MG, QMO
     Route: 042
     Dates: start: 20080101, end: 20080725

REACTIONS (11)
  - BONE DISORDER [None]
  - DEBRIDEMENT [None]
  - GINGIVAL ERYTHEMA [None]
  - METASTASES TO BONE [None]
  - OSTEOMYELITIS [None]
  - OSTEONECROSIS [None]
  - PERIODONTITIS [None]
  - TOOTH EXTRACTION [None]
  - TREATMENT FAILURE [None]
  - WOUND DRAINAGE [None]
  - WOUND TREATMENT [None]
